FAERS Safety Report 10311132 (Version 1)
Quarter: 2014Q3

REPORT INFORMATION
  Report Type: Spontaneous
  Country: US (occurrence: US)
  Receive Date: 20140717
  Receipt Date: 20140717
  Transmission Date: 20150326
  Serious: Yes (Other)
  Sender: FDA-Public Use
  Company Number: US-GLAXOSMITHKLINE-A1081179A

PATIENT
  Sex: Female

DRUGS (1)
  1. BENLYSTA [Suspect]
     Active Substance: BELIMUMAB
     Indication: SYSTEMIC LUPUS ERYTHEMATOSUS
     Dosage: 120MG CYCLIC
     Route: 065
     Dates: start: 20130510, end: 201404

REACTIONS (9)
  - Pain [Unknown]
  - Systemic lupus erythematosus [Unknown]
  - Motor dysfunction [Unknown]
  - Fibromyalgia [Unknown]
  - Gastrointestinal disorder [Unknown]
  - Sjogren^s syndrome [Unknown]
  - Bladder disorder [Unknown]
  - Autonomic neuropathy [Unknown]
  - Nervous system disorder [Unknown]
